FAERS Safety Report 4393913-0 (Version None)
Quarter: 2004Q3

REPORT INFORMATION
  Report Type: 
  Country: None (occurrence: None)
  Receive Date: 20040709
  Receipt Date: 20040628
  Transmission Date: 20050211
  Serious: Yes (Other)
  Sender: FDA-Public Use
  Company Number: PHHO2004VE09244

PATIENT
  Age: 62 Year
  Sex: Male

DRUGS (3)
  1. DIOVAN HCT [Suspect]
     Indication: HYPERTENSION
     Dosage: 160 MG, QD
     Route: 048
     Dates: start: 20030901, end: 20031001
  2. DIOVAN HCT [Suspect]
     Dosage: 1 TABLET
     Route: 048
     Dates: start: 20031201, end: 20031201
  3. CORASPIN [Concomitant]

REACTIONS (2)
  - DYSPEPSIA [None]
  - GASTRITIS [None]
